FAERS Safety Report 26027846 (Version 1)
Quarter: 2025Q4

REPORT INFORMATION
  Report Type: Report from Study
  Country: US (occurrence: US)
  Receive Date: 20251111
  Receipt Date: 20251111
  Transmission Date: 20260118
  Serious: No
  Sender: ACADIA PHARMACEUTICALS
  Company Number: US-ACADIA PHARMACEUTICALS INC.-ACA-2025-PIM-011889

PATIENT
  Age: 66 Year
  Sex: Female

DRUGS (11)
  1. NUPLAZID [Suspect]
     Active Substance: PIMAVANSERIN TARTRATE
     Indication: Parkinson^s disease
     Dosage: 34 MILLIGRAM, QD
     Route: 048
     Dates: start: 20251007, end: 20251009
  2. AMOXICILLIN [Concomitant]
     Active Substance: AMOXICILLIN
  3. Embecta [Concomitant]
     Dosage: PEN NEEDLE NANO 2ND GEN 32G X 4MM
  4. FreeStyle Libre 2 Reader (old) [Concomitant]
  5. FreeStyle Libre 2 Sensor [Concomitant]
  6. IBUPROFEN [Concomitant]
     Active Substance: IBUPROFEN
  7. LANTUS [Concomitant]
     Active Substance: INSULIN GLARGINE
     Dosage: U-100 INSULIN
  8. LISINOPRIL [Concomitant]
     Active Substance: LISINOPRIL
  9. ROSUVASTATIN [Concomitant]
     Active Substance: ROSUVASTATIN
  10. SERTRALINE [Concomitant]
     Active Substance: SERTRALINE HYDROCHLORIDE
  11. TRESIBA [Concomitant]
     Active Substance: INSULIN DEGLUDEC
     Dosage: PEN (U-200)

REACTIONS (4)
  - Dizziness [Recovered/Resolved]
  - Eye irritation [Recovered/Resolved]
  - Fall [Recovered/Resolved]
  - Somnolence [Recovered/Resolved]

NARRATIVE: CASE EVENT DATE: 20251007
